FAERS Safety Report 5131110-1 (Version None)
Quarter: 2006Q3

REPORT INFORMATION
  Report Type: 
  Country: None (occurrence: None)
  Receive Date: 20060825
  Receipt Date: 20060713
  Transmission Date: 20061208
  Serious: No
  Sender: FDA-Public Use
  Company Number: 06P-131-0338137-00

PATIENT
  Age: 51 Year
  Sex: Male

DRUGS (5)
  1. KALETRA [Suspect]
     Indication: ACQUIRED IMMUNODEFICIENCY SYNDROME
     Dosage: 2 TABLET, 2 IN 1 D, PER ORAL
     Route: 048
     Dates: start: 20060523
  2. VIREAD [Concomitant]
  3. STAVUDINE [Concomitant]
  4. BACTRIM [Concomitant]
  5. ZITHROMAX [Concomitant]

REACTIONS (1)
  - RASH [None]
